FAERS Safety Report 18331863 (Version 1)
Quarter: 2020Q3

REPORT INFORMATION
  Report Type: Spontaneous
  Country: US (occurrence: US)
  Receive Date: 20200930
  Receipt Date: 20200930
  Transmission Date: 20201103
  Serious: Yes (Other)
  Sender: FDA-Public Use
  Company Number: US-SA-2020SA262583

PATIENT

DRUGS (3)
  1. LANTUS SOLOSTAR [Suspect]
     Active Substance: INSULIN GLARGINE
     Dosage: 10 UNITS IN THE MORNING AND 15 UNITS AT NIGHT, BID
     Route: 065
     Dates: start: 2017
  2. METFORMIN [Concomitant]
     Active Substance: METFORMIN HYDROCHLORIDE
     Dosage: UNK
     Route: 065
  3. HUMALOG [Concomitant]
     Active Substance: INSULIN LISPRO
     Dosage: UNK
     Route: 065

REACTIONS (8)
  - Dyspepsia [Unknown]
  - Muscular weakness [Unknown]
  - Pancreatic carcinoma [Unknown]
  - Rib fracture [Unknown]
  - Liver transplant [Unknown]
  - Procedural complication [Unknown]
  - Inappropriate schedule of product administration [Unknown]
  - Multiple use of single-use product [Unknown]

NARRATIVE: CASE EVENT DATE: 2017
